FAERS Safety Report 26028183 (Version 1)
Quarter: 2025Q4

REPORT INFORMATION
  Report Type: Spontaneous
  Country: US (occurrence: US)
  Receive Date: 20251111
  Receipt Date: 20251111
  Transmission Date: 20260118
  Serious: No
  Sender: ORASIS PHARMACEUTICALS
  Company Number: US-ORASIS PHARMACEUTIALS-2025ORA00079

PATIENT
  Sex: Female

DRUGS (1)
  1. QLOSI [Suspect]
     Active Substance: PILOCARPINE HYDROCHLORIDE
     Dosage: 1 DROP INTO RIGHT EYE, 1 TO 2 TIMES DAILY AS DIRECTED
     Route: 047

REACTIONS (1)
  - Drug ineffective [Unknown]
